FAERS Safety Report 17130386 (Version 3)
Quarter: 2020Q1

REPORT INFORMATION
  Report Type: Report from Study
  Country: GB (occurrence: GB)
  Receive Date: 20191209
  Receipt Date: 20200228
  Transmission Date: 20200409
  Serious: Yes (Other)
  Sender: FDA-Public Use
  Company Number: NVSC2019GB015931

PATIENT
  Sex: Male

DRUGS (1)
  1. COSENTYX [Suspect]
     Active Substance: SECUKINUMAB
     Indication: ANKYLOSING SPONDYLITIS
     Dosage: 150 MG, QMO (PRE-FILLED PEN)
     Route: 058
     Dates: start: 2019

REACTIONS (7)
  - Limb injury [Unknown]
  - Food allergy [Unknown]
  - Therapeutic product effect incomplete [Unknown]
  - Ankylosing spondylitis [Unknown]
  - Mouth ulceration [Unknown]
  - Peripheral swelling [Unknown]
  - Oropharyngeal discomfort [Unknown]
